FAERS Safety Report 10037155 (Version 1)
Quarter: 2014Q1

REPORT INFORMATION
  Report Type: Spontaneous
  Country: IT (occurrence: None)
  Receive Date: 20140324
  Receipt Date: 20140324
  Transmission Date: 20141002
  Serious: Yes (Hospitalization)
  Sender: FDA-Public Use
  Company Number: 2014AP002027

PATIENT
  Age: 67 Year
  Sex: Female

DRUGS (2)
  1. CLARITHROMYCIN (CLARITHROMYCIN) [Suspect]
     Indication: HELICOBACTER INFECTION
     Route: 048
     Dates: start: 20140220, end: 20140228
  2. AMOXICILLIN (AMOXICILLIN) [Suspect]
     Indication: HELICOBACTER INFECTION
     Route: 048
     Dates: start: 20140220, end: 20140228

REACTIONS (2)
  - Erythema [None]
  - Pruritus [None]
